FAERS Safety Report 7902859-X (Version None)
Quarter: 2011Q4

REPORT INFORMATION
  Report Type: 
  Country: None (occurrence: None)
  Receive Date: 20111107
  Receipt Date: 20111028
  Transmission Date: 20120403
  Serious: Yes (Other)
  Sender: FDA-Public Use
  Company Number: 1096680

PATIENT
  Age: 79 Year
  Sex: Female

DRUGS (2)
  1. PACLITAXEL [Suspect]
     Indication: OVARIAN CANCER
     Dosage: 300 MG TOTAL, INTRAVENOUS (NOT OTHERWISE SPECIFIED)
     Route: 042
     Dates: start: 20111024, end: 20111024
  2. CARBOPLATIN [Concomitant]

REACTIONS (2)
  - PRURITUS GENERALISED [None]
  - ERYTHEMA [None]
